FAERS Safety Report 11500271 (Version 1)
Quarter: 2015Q3

REPORT INFORMATION
  Report Type: Report from Study
  Country: JP (occurrence: JP)
  Receive Date: 20150914
  Receipt Date: 20150914
  Transmission Date: 20151125
  Serious: Yes (Hospitalization, Other)
  Sender: FDA-Public Use
  Company Number: JP-ASTELLAS-2009JP000045

PATIENT
  Age: 70 Year
  Sex: Female

DRUGS (48)
  1. TACROLIMUS. [Suspect]
     Active Substance: TACROLIMUS
     Route: 048
     Dates: start: 20080215
  2. PREDNISOLONE. [Suspect]
     Active Substance: PREDNISOLONE
     Route: 048
     Dates: start: 20080501, end: 20080514
  3. PREDNISOLONE. [Suspect]
     Active Substance: PREDNISOLONE
     Route: 048
     Dates: start: 20110416
  4. BLOPRESS [Concomitant]
     Active Substance: CANDESARTAN CILEXETIL
     Indication: PROPHYLAXIS
     Route: 048
     Dates: end: 20100709
  5. ISCOTIN [Concomitant]
     Active Substance: ISONIAZID
     Indication: PROPHYLAXIS
     Route: 048
  6. ISCOTIN [Concomitant]
     Active Substance: ISONIAZID
     Route: 048
  7. MAGMITT [Concomitant]
     Active Substance: MAGNESIUM OXIDE
     Indication: CONSTIPATION
     Route: 048
     Dates: start: 20080216
  8. BREDININ [Concomitant]
     Active Substance: MIZORIBINE
     Indication: RHEUMATOID ARTHRITIS
     Route: 048
     Dates: start: 20090427, end: 20090901
  9. BONOTEO [Concomitant]
     Active Substance: MINODRONIC ACID
     Indication: PROPHYLAXIS
     Route: 048
     Dates: start: 20110115, end: 20130111
  10. FOSAMAC [Concomitant]
     Active Substance: ALENDRONATE SODIUM
     Indication: PROPHYLAXIS
     Route: 048
     Dates: end: 20110114
  11. CONIEL [Concomitant]
     Active Substance: BENIDIPINE HYDROCHLORIDE
     Indication: PRODUCT USED FOR UNKNOWN INDICATION
     Route: 048
     Dates: end: 20080312
  12. MAGMITT [Concomitant]
     Active Substance: MAGNESIUM OXIDE
     Indication: PROPHYLAXIS
  13. TACROLIMUS. [Suspect]
     Active Substance: TACROLIMUS
     Indication: LUPUS NEPHRITIS
     Route: 048
     Dates: start: 20080201, end: 20080214
  14. PREDNISOLONE. [Suspect]
     Active Substance: PREDNISOLONE
     Route: 048
     Dates: start: 20080201, end: 20080213
  15. MEVALOTIN [Concomitant]
     Active Substance: PRAVASTATIN SODIUM
     Indication: PRODUCT USED FOR UNKNOWN INDICATION
     Route: 048
  16. WARFARIN                           /00014803/ [Concomitant]
     Active Substance: WARFARIN
     Indication: PRODUCT USED FOR UNKNOWN INDICATION
     Route: 048
     Dates: end: 20080513
  17. PARIET [Concomitant]
     Active Substance: RABEPRAZOLE SODIUM
     Indication: PROPHYLAXIS
     Route: 048
     Dates: start: 20100512
  18. CELECOX [Concomitant]
     Active Substance: CELECOXIB
     Indication: RHEUMATOID ARTHRITIS
     Route: 048
     Dates: start: 20100513
  19. BONOTEO [Concomitant]
     Active Substance: MINODRONIC ACID
     Indication: PROPHYLAXIS
     Route: 048
     Dates: end: 20140801
  20. PREDNISOLONE. [Suspect]
     Active Substance: PREDNISOLONE
     Indication: LUPUS NEPHRITIS
     Route: 048
     Dates: start: 20080105, end: 20080131
  21. PREDNISOLONE. [Suspect]
     Active Substance: PREDNISOLONE
     Route: 048
     Dates: start: 20080612, end: 20080806
  22. PREDNISOLONE. [Suspect]
     Active Substance: PREDNISOLONE
     Route: 048
     Dates: start: 20100513, end: 20100609
  23. PREDNISOLONE. [Suspect]
     Active Substance: PREDNISOLONE
     Route: 048
     Dates: start: 20100610, end: 20101126
  24. FOSAMAC [Concomitant]
     Active Substance: ALENDRONATE SODIUM
     Route: 048
     Dates: start: 20130112
  25. BLOPRESS [Concomitant]
     Active Substance: CANDESARTAN CILEXETIL
     Route: 048
  26. SELBEX [Concomitant]
     Active Substance: TEPRENONE
     Indication: PRODUCT USED FOR UNKNOWN INDICATION
     Route: 048
     Dates: end: 20100512
  27. BAYASPIRIN [Concomitant]
     Active Substance: ASPIRIN
     Indication: LUPUS NEPHRITIS
     Route: 048
     Dates: start: 20080515, end: 20101001
  28. ENBREL [Concomitant]
     Active Substance: ETANERCEPT
     Route: 058
     Dates: start: 20120218, end: 20140213
  29. LUPRAC [Concomitant]
     Active Substance: TORSEMIDE
     Indication: LUPUS NEPHRITIS
     Route: 048
     Dates: end: 20100512
  30. PREDNISOLONE. [Suspect]
     Active Substance: PREDNISOLONE
     Route: 048
     Dates: start: 20080214, end: 20080228
  31. PREDNISOLONE. [Suspect]
     Active Substance: PREDNISOLONE
     Route: 048
     Dates: start: 20080327, end: 20080430
  32. PREDNISOLONE. [Suspect]
     Active Substance: PREDNISOLONE
     Route: 048
     Dates: start: 20080807, end: 20100121
  33. PREDNISOLONE. [Suspect]
     Active Substance: PREDNISOLONE
  34. CALSLOT [Concomitant]
     Active Substance: MANIDIPINE HYDROCHLORIDE
     Indication: PRODUCT USED FOR UNKNOWN INDICATION
     Route: 048
     Dates: start: 20080313
  35. BLOPRESS [Concomitant]
     Active Substance: CANDESARTAN CILEXETIL
     Route: 048
     Dates: start: 20100710
  36. HUMIRA [Concomitant]
     Active Substance: ADALIMUMAB
     Indication: LUPUS NEPHRITIS
     Route: 065
     Dates: start: 20140214
  37. HUMIRA [Concomitant]
     Active Substance: ADALIMUMAB
     Indication: RHEUMATOID ARTHRITIS
  38. ENBREL [Concomitant]
     Active Substance: ETANERCEPT
     Indication: LUPUS NEPHRITIS
     Route: 058
     Dates: start: 20090902, end: 20120217
  39. ALFAROL [Concomitant]
     Active Substance: ALFACALCIDOL
     Indication: PROPHYLAXIS
     Dosage: 0.5 ?G, ONCE DAILY
     Route: 048
  40. CELECOX [Concomitant]
     Active Substance: CELECOXIB
     Indication: SPINAL OSTEOARTHRITIS
  41. PREDNISOLONE. [Suspect]
     Active Substance: PREDNISOLONE
     Route: 048
     Dates: start: 20080301, end: 20080313
  42. PREDNISOLONE. [Suspect]
     Active Substance: PREDNISOLONE
     Route: 048
     Dates: start: 20080314, end: 20080326
  43. PREDNISOLONE. [Suspect]
     Active Substance: PREDNISOLONE
     Route: 048
     Dates: start: 20080515, end: 20080611
  44. PREDNISOLONE. [Suspect]
     Active Substance: PREDNISOLONE
     Route: 048
     Dates: start: 20100122, end: 20100512
  45. PREDNISOLONE. [Suspect]
     Active Substance: PREDNISOLONE
     Route: 048
     Dates: start: 20101127, end: 20110415
  46. CALSLOT [Concomitant]
     Active Substance: MANIDIPINE HYDROCHLORIDE
     Route: 048
  47. HYPEN                              /00613801/ [Concomitant]
     Active Substance: ETODOLAC
     Indication: RHEUMATOID ARTHRITIS
     Route: 048
     Dates: start: 20100407, end: 20100512
  48. CYTOTEC [Concomitant]
     Active Substance: MISOPROSTOL
     Indication: RHEUMATOID ARTHRITIS
     Route: 048
     Dates: start: 20100407, end: 20100512

REACTIONS (6)
  - Rheumatoid arthritis [Recovering/Resolving]
  - Constipation [Recovering/Resolving]
  - Rheumatoid arthritis [Recovered/Resolved]
  - Spinal osteoarthritis [Recovering/Resolving]
  - Spinal compression fracture [Recovered/Resolved]
  - Diabetes mellitus [Recovered/Resolved]

NARRATIVE: CASE EVENT DATE: 20080216
